FAERS Safety Report 12187614 (Version 1)
Quarter: 2016Q1

REPORT INFORMATION
  Report Type: Spontaneous
  Country: US (occurrence: None)
  Receive Date: 20160316
  Receipt Date: 20160316
  Transmission Date: 20160526
  Serious: Yes (Life-Threatening, Hospitalization)
  Sender: FDA-Public Use
  Company Number: None

PATIENT
  Age: 76 Year
  Sex: Male
  Weight: 124.6 kg

DRUGS (1)
  1. WARFARIN [Suspect]
     Active Substance: WARFARIN
     Indication: CORONARY ARTERIAL STENT INSERTION
     Dosage: AT BEDTIME
     Route: 048
     Dates: start: 20150613, end: 20151010

REACTIONS (16)
  - Drug interaction [None]
  - Acute kidney injury [None]
  - Metabolic acidosis [None]
  - Arthralgia [None]
  - International normalised ratio increased [None]
  - Erythema [None]
  - Haematoma [None]
  - Abdominal wall haematoma [None]
  - Hypoxia [None]
  - Abdominal pain [None]
  - Epistaxis [None]
  - Haemoglobin decreased [None]
  - Mass [None]
  - Upper gastrointestinal haemorrhage [None]
  - Ischaemic hepatitis [None]
  - Prothrombin time prolonged [None]

NARRATIVE: CASE EVENT DATE: 20151006
